FAERS Safety Report 5375120-8 (Version None)
Quarter: 2007Q2

REPORT INFORMATION
  Report Type: 
  Country: None (occurrence: None)
  Receive Date: 20070629
  Receipt Date: 20060710
  Transmission Date: 20071010
  Serious: No
  Sender: FDA-Public Use
  Company Number: US-ASTRAZENECA-2006UW14194

PATIENT
  Age: 75 Year
  Sex: Female
  Weight: 49 kg

DRUGS (5)
  1. NOLVADEX [Suspect]
     Indication: BREAST CANCER
     Route: 048
     Dates: start: 20060101
  2. ACTINAL [Concomitant]
  3. CALCIUM CHLORIDE [Concomitant]
  4. NEXIUM [Concomitant]
  5. ZOCOR [Concomitant]

REACTIONS (1)
  - JOINT STIFFNESS [None]
